FAERS Safety Report 14907960 (Version 1)
Quarter: 2018Q2

REPORT INFORMATION
  Report Type: Spontaneous
  Country: ZA (occurrence: ZA)
  Receive Date: 20180517
  Receipt Date: 20180517
  Transmission Date: 20180711
  Serious: Yes (Other)
  Sender: FDA-Public Use
  Company Number: ZA-B.I. PHARMACEUTICALS,INC./RIDGEFIELD-2018-BI-026198

PATIENT
  Age: 7 Week
  Sex: Female

DRUGS (1)
  1. VIRAMUNE [Suspect]
     Active Substance: NEVIRAPINE
     Indication: PRODUCT USED FOR UNKNOWN INDICATION
     Dosage: 2MG/KG
     Route: 065

REACTIONS (3)
  - Oedema [Recovered/Resolved]
  - Malnutrition [Unknown]
  - HIV associated nephropathy [Unknown]
